FAERS Safety Report 24291368 (Version 1)
Quarter: 2024Q3

REPORT INFORMATION
  Report Type: Spontaneous
  Country: US (occurrence: None)
  Receive Date: 20240906
  Receipt Date: 20240906
  Transmission Date: 20241017
  Serious: No
  Sender: DOMPE FARMACEUTICI
  Company Number: US-FARMAPROD-202308-202308-2472

PATIENT
  Age: 73 Year
  Sex: Female

DRUGS (21)
  1. OXERVATE [Suspect]
     Active Substance: CENEGERMIN-BKBJ
     Indication: Neurotrophic keratopathy
     Route: 047
     Dates: start: 20230731
  2. OXERVATE [Suspect]
     Active Substance: CENEGERMIN-BKBJ
     Indication: Hypoaesthesia eye
  3. OXERVATE [Suspect]
     Active Substance: CENEGERMIN-BKBJ
  4. CARAFATE [Concomitant]
     Active Substance: SUCRALFATE
  5. FLONASE ALLERGY RELIEF [Concomitant]
     Active Substance: FLUTICASONE PROPIONATE
  6. OXYCODONE HYDROCHLORIDE [Concomitant]
     Active Substance: OXYCODONE HYDROCHLORIDE
  7. LEVOTHYROXINE SODIUM [Concomitant]
     Active Substance: LEVOTHYROXINE SODIUM
  8. ZOLPIDEM TARTRATE [Concomitant]
     Active Substance: ZOLPIDEM TARTRATE
  9. CALCITRIOL [Concomitant]
     Active Substance: CALCITRIOL
  10. TORSEMIDE [Concomitant]
     Active Substance: TORSEMIDE
  11. PAIN RELIEF NOS [Concomitant]
     Active Substance: UNSPECIFIED INGREDIENT
  12. CLOPIDOGREL [Concomitant]
     Active Substance: CLOPIDOGREL BISULFATE
  13. BEPOTASTINE BESYLATE [Concomitant]
     Active Substance: BEPOTASTINE BESYLATE
  14. POTASSIUM CHLORIDE [Concomitant]
     Active Substance: POTASSIUM CHLORIDE
     Dosage: 20MEQ/15ML LIQUID
  15. SKELAXIN [Concomitant]
     Active Substance: METAXALONE
  16. SMOOTHLAX [Concomitant]
     Active Substance: POLYETHYLENE GLYCOL 3350
  17. VITAMIN D2 [Concomitant]
     Active Substance: ERGOCALCIFEROL
  18. DIAZEPAM [Concomitant]
     Active Substance: DIAZEPAM
  19. LINZESS [Concomitant]
     Active Substance: LINACLOTIDE
  20. METHOTREXATE [Concomitant]
     Active Substance: METHOTREXATE
  21. ARTIFICIAL TEARS [Concomitant]

REACTIONS (5)
  - Product use complaint [Unknown]
  - Product dose omission issue [Unknown]
  - Vision blurred [Unknown]
  - Dry eye [Unknown]
  - Dry skin [Unknown]

NARRATIVE: CASE EVENT DATE: 20230815
